FAERS Safety Report 9943101 (Version 3)
Quarter: 2014Q1

REPORT INFORMATION
  Report Type: Spontaneous
  Country: US (occurrence: US)
  Receive Date: 20140303
  Receipt Date: 20140324
  Transmission Date: 20141002
  Serious: Yes (Hospitalization)
  Sender: FDA-Public Use
  Company Number: US-GLAXOSMITHKLINE-A0841227A

PATIENT
  Age: 81 Year
  Sex: Female

DRUGS (5)
  1. ADVAIR [Suspect]
     Indication: EMPHYSEMA
     Dosage: 1PUFF TWICE PER DAY
     Route: 055
     Dates: start: 20041013
  2. VENTOLIN [Concomitant]
     Dates: start: 20041013
  3. SYNTHROID [Concomitant]
  4. COUMADIN [Concomitant]
  5. OXYGEN [Concomitant]

REACTIONS (2)
  - Thrombosis [Unknown]
  - Paranasal sinus hypersecretion [Unknown]
